FAERS Safety Report 18187304 (Version 1)
Quarter: 2020Q3

REPORT INFORMATION
  Report Type: Spontaneous
  Country: US (occurrence: US)
  Receive Date: 20200824
  Receipt Date: 20200824
  Transmission Date: 20201103
  Serious: No
  Sender: FDA-Public Use
  Company Number: None

PATIENT
  Age: 68 Year
  Sex: Female
  Weight: 56.7 kg

DRUGS (9)
  1. RITUXAN [Concomitant]
     Active Substance: RITUXIMAB
  2. CELEBREX [Concomitant]
     Active Substance: CELECOXIB
  3. LEVOTHYROXINE SODIUM. [Concomitant]
     Active Substance: LEVOTHYROXINE SODIUM
  4. FENTANYL. [Concomitant]
     Active Substance: FENTANYL
  5. METFORMIN HCL ER (OSM) [Concomitant]
     Active Substance: METFORMIN HYDROCHLORIDE
  6. IBRANCE [Suspect]
     Active Substance: PALBOCICLIB
     Indication: BREAST CANCER
     Dosage: ?          OTHER FREQUENCY:21 DAYS ON;?
     Route: 048
     Dates: start: 20200130, end: 20200824
  7. NORCO [Concomitant]
     Active Substance: ACETAMINOPHEN\HYDROCODONE BITARTRATE
  8. PROCHLORPERAZINE MALEATE. [Concomitant]
     Active Substance: PROCHLORPERAZINE MALEATE
  9. VITAMIN D [Concomitant]
     Active Substance: VITAMIN D NOS

REACTIONS (1)
  - Hip fracture [None]

NARRATIVE: CASE EVENT DATE: 20200824
